FAERS Safety Report 12659162 (Version 5)
Quarter: 2016Q4

REPORT INFORMATION
  Report Type: Spontaneous
  Country: US (occurrence: US)
  Receive Date: 20160817
  Receipt Date: 20161201
  Transmission Date: 20170207
  Serious: Yes (Hospitalization, Other)
  Sender: FDA-Public Use
  Company Number: US-PFIZER INC-2016366847

PATIENT
  Age: 69 Year
  Sex: Female
  Weight: 82 kg

DRUGS (26)
  1. LYRICA [Suspect]
     Active Substance: PREGABALIN
     Dosage: 75 MG, EVERY SIX HOURS
     Route: 048
  2. ZYRTEC [Concomitant]
     Active Substance: CETIRIZINE HYDROCHLORIDE
     Dosage: 10 MG, 1X/DAY(1 PO Q DAY)
     Route: 048
     Dates: start: 20130808
  3. LYRICA [Suspect]
     Active Substance: PREGABALIN
     Dosage: UNK
     Route: 048
  4. NITROSTAT [Concomitant]
     Active Substance: NITROGLYCERIN
     Indication: CHEST PAIN
     Dosage: UNK, AS NEEDED
     Dates: start: 2006
  5. ULTRAM [Concomitant]
     Active Substance: TRAMADOL HYDROCHLORIDE
     Indication: PAIN
     Dosage: UNK
     Dates: start: 2006, end: 2006
  6. ZYRTEC [Concomitant]
     Active Substance: CETIRIZINE HYDROCHLORIDE
     Dosage: UNK
     Dates: start: 2006
  7. CYANOCOBALAMIN. [Concomitant]
     Active Substance: CYANOCOBALAMIN
     Dosage: UNK
     Dates: start: 2004
  8. CYANOCOBALAMIN. [Concomitant]
     Active Substance: CYANOCOBALAMIN
     Dosage: 1000 MCG/ML, 1 ML IM EVERY 2 WEEKS
     Route: 030
     Dates: start: 20160712
  9. ULTRAM [Concomitant]
     Active Substance: TRAMADOL HYDROCHLORIDE
     Dosage: 50 MG, AS NEEDED(1 TABLET EVERY 4 TO 6 HOURS AS NEEDED)
     Route: 048
     Dates: start: 20150923
  10. LYRICA [Suspect]
     Active Substance: PREGABALIN
     Dosage: 75 MG, AS NEEDED(1 PO Q6 PRN/1 CAPSULE EVERY 6 HOURS PRN/HAD TO TAKE EVERY 5 HOURS)
     Route: 048
     Dates: start: 20150923
  11. PYRIDIUM [Concomitant]
     Active Substance: PHENAZOPYRIDINE
     Dosage: UNK
     Dates: start: 1963, end: 2003
  12. XOPENEX HFA [Concomitant]
     Active Substance: LEVALBUTEROL TARTRATE
     Dosage: UNK
     Dates: start: 2010
  13. CYANOCOBALAMIN. [Concomitant]
     Active Substance: CYANOCOBALAMIN
     Dosage: 1000 MCG/ML, 1 ML IM EVERY 2 WEEKS
     Route: 030
     Dates: start: 20160405
  14. NITROSTAT [Concomitant]
     Active Substance: NITROGLYCERIN
     Dosage: 0.4 MG, AS NEEDED (1 TABLET UNDER THE TONGUE EVERY 5 MINUTES FOR UP TO 3 DOSES AS NEEDED )
     Route: 060
     Dates: start: 20151119
  15. PYRIDIUM [Concomitant]
     Active Substance: PHENAZOPYRIDINE
     Dosage: 100 MG, 2X/DAY
     Route: 048
     Dates: start: 20120515
  16. LYRICA [Suspect]
     Active Substance: PREGABALIN
     Dosage: 200 MG, DAILY
     Route: 048
  17. ALPRAZOLAM. [Concomitant]
     Active Substance: ALPRAZOLAM
     Dosage: 1 MG, AS NEEDED(1 TABLET EVERY 6 HOURS PRN)
     Route: 048
     Dates: start: 2006
  18. CYANOCOBALAMIN. [Concomitant]
     Active Substance: CYANOCOBALAMIN
     Dosage: 1000 MCG/ML, 1 ML IM EVERY 2 WEEKS
     Route: 030
     Dates: start: 20160628
  19. LYRICA [Suspect]
     Active Substance: PREGABALIN
     Indication: TRIGEMINAL NEURALGIA
     Dosage: 75 MG, (4 TO 5 XS A DAY)
     Dates: start: 200605
  20. SYMBICORT [Concomitant]
     Active Substance: BUDESONIDE\FORMOTEROL FUMARATE DIHYDRATE
     Dosage: UNK UNK, 2X/DAY ([BUDESONIDE: 80MCG/ACT]/[FORMOTEROL FUMARATE: 4.5MCG/ACT])
     Route: 055
     Dates: start: 20130222
  21. LYRICA [Suspect]
     Active Substance: PREGABALIN
     Dosage: 50 MG, 3X/DAY
     Route: 048
     Dates: start: 20130507
  22. LYRICA [Suspect]
     Active Substance: PREGABALIN
     Dosage: 300 MG, DAILY
     Route: 048
  23. CYANOCOBALAMIN. [Concomitant]
     Active Substance: CYANOCOBALAMIN
     Dosage: 1000 MCG/ML, 1 ML IM EVERY 2 WEEKS
     Route: 030
     Dates: start: 20160726
  24. PROCTOZONE HC [Concomitant]
     Active Substance: HYDROCORTISONE
     Dosage: UNK
     Dates: start: 2008, end: 2008
  25. PROCTOZONE HC [Concomitant]
     Active Substance: HYDROCORTISONE
     Dosage: 2.5 % CREAM, USE AS DIRECTED APPLY PRN Q4 HOURS
     Route: 054
     Dates: start: 20090716
  26. XOPENEX HFA [Concomitant]
     Active Substance: LEVALBUTEROL TARTRATE
     Dosage: UNK UNK, AS NEEDED (45 MCG/ACT INHALATION)
     Route: 055
     Dates: start: 20150204

REACTIONS (23)
  - Condition aggravated [Not Recovered/Not Resolved]
  - Condition aggravated [Not Recovered/Not Resolved]
  - Cerebral disorder [Unknown]
  - Paraesthesia [Unknown]
  - Peripheral swelling [Not Recovered/Not Resolved]
  - Fall [Not Recovered/Not Resolved]
  - Disease progression [Unknown]
  - Tooth disorder [Unknown]
  - Speech disorder [Unknown]
  - Dizziness [Not Recovered/Not Resolved]
  - Swollen tongue [Not Recovered/Not Resolved]
  - Eating disorder [Not Recovered/Not Resolved]
  - Hallucination [Recovered/Resolved]
  - Balance disorder [Not Recovered/Not Resolved]
  - Swelling [Not Recovered/Not Resolved]
  - Cataract [Unknown]
  - Paralysis [Recovered/Resolved]
  - Speech disorder [Not Recovered/Not Resolved]
  - Drug dependence [Not Recovered/Not Resolved]
  - Condition aggravated [Not Recovered/Not Resolved]
  - Lip swelling [Not Recovered/Not Resolved]
  - Body height decreased [Not Recovered/Not Resolved]
  - Trigeminal neuralgia [Unknown]

NARRATIVE: CASE EVENT DATE: 2006
